FAERS Safety Report 24109246 (Version 1)
Quarter: 2024Q3

REPORT INFORMATION
  Report Type: Spontaneous
  Country: US (occurrence: US)
  Receive Date: 20240718
  Receipt Date: 20240718
  Transmission Date: 20241017
  Serious: Yes (Hospitalization)
  Sender: DR REDDYS
  Company Number: US-E2BLSMVVAL-SPO/USA/24/0010182

PATIENT
  Age: 55 Year
  Sex: Male

DRUGS (10)
  1. SIROLIMUS [Suspect]
     Active Substance: SIROLIMUS
     Indication: Ex vivo gene therapy
     Dates: start: 20240130, end: 20240206
  2. SIROLIMUS [Suspect]
     Active Substance: SIROLIMUS
     Dates: start: 20240207, end: 20240208
  3. SIROLIMUS [Suspect]
     Active Substance: SIROLIMUS
     Dates: start: 20240307, end: 20240313
  4. SIROLIMUS [Suspect]
     Active Substance: SIROLIMUS
     Dates: start: 20240313, end: 20240315
  5. SIROLIMUS [Suspect]
     Active Substance: SIROLIMUS
     Dates: start: 20240316, end: 20240327
  6. RITUXIMAB [Suspect]
     Active Substance: RITUXIMAB
     Indication: Antiviral prophylaxis
     Dates: start: 20240130, end: 20240206
  7. RITUXIMAB [Suspect]
     Active Substance: RITUXIMAB
     Dates: start: 20240207, end: 20240208
  8. RITUXIMAB [Suspect]
     Active Substance: RITUXIMAB
     Dates: start: 20240307, end: 20240313
  9. RITUXIMAB [Suspect]
     Active Substance: RITUXIMAB
     Dates: start: 20240313, end: 20240315
  10. RITUXIMAB [Suspect]
     Active Substance: RITUXIMAB
     Dates: start: 20240316, end: 20240327

REACTIONS (3)
  - Pancreatitis [Recovered/Resolved]
  - Bacterial sepsis [Recovered/Resolved]
  - Bacteraemia [Unknown]

NARRATIVE: CASE EVENT DATE: 20240507
